FAERS Safety Report 23604029 (Version 1)
Quarter: 2024Q1

REPORT INFORMATION
  Report Type: Spontaneous
  Country: DE (occurrence: DE)
  Receive Date: 20240307
  Receipt Date: 20240307
  Transmission Date: 20240410
  Serious: Yes (Hospitalization, Other)
  Sender: FDA-Public Use
  Company Number: None

PATIENT
  Age: 36 Year
  Sex: Female

DRUGS (4)
  1. ORGALUTRAN [Suspect]
     Active Substance: GANIRELIX ACETATE
     Indication: Assisted reproductive technology
     Dosage: AN TAG 7-10
     Route: 065
  2. CHORIOGONADOTROPIN ALFA [Suspect]
     Active Substance: CHORIOGONADOTROPIN ALFA
     Indication: Assisted reproductive technology
     Dosage: QD (1X)
     Route: 065
  3. FOLLITROPIN\LUTROPIN ALFA [Suspect]
     Active Substance: FOLLITROPIN\LUTROPIN ALFA
     Indication: Assisted reproductive technology
     Dosage: 200 INTERNATIONAL UNIT, QD
     Route: 065
  4. TRIPTORELIN ACETATE [Suspect]
     Active Substance: TRIPTORELIN ACETATE
     Indication: Assisted reproductive technology
     Dosage: BID (2X), SOLUTION FOR INJECTION IN A PRE-FILLED SYRINGE
     Route: 065

REACTIONS (3)
  - Ascites [Recovered/Resolved]
  - Ovarian hyperstimulation syndrome [Recovered/Resolved]
  - Ovarian enlargement [Recovered/Resolved]

NARRATIVE: CASE EVENT DATE: 20240209
